FAERS Safety Report 20607306 (Version 2)
Quarter: 2022Q2

REPORT INFORMATION
  Report Type: Spontaneous
  Country: US (occurrence: US)
  Receive Date: 20220317
  Receipt Date: 20220607
  Transmission Date: 20220720
  Serious: Yes (Hospitalization, Other)
  Sender: FDA-Public Use
  Company Number: US-NOVOPROD-899846

PATIENT
  Age: 47 Year
  Sex: Female

DRUGS (1)
  1. NOVOLOG [Suspect]
     Active Substance: INSULIN ASPART
     Indication: Pancreatogenous diabetes
     Dosage: USING VIAL SLIDING SCALE
     Route: 058
     Dates: start: 201908

REACTIONS (5)
  - Pancreatitis necrotising [Unknown]
  - Bacteraemia [Unknown]
  - Injection site abscess [Not Recovered/Not Resolved]
  - Glycosylated haemoglobin increased [Recovered/Resolved]
  - Product quality issue [Unknown]

NARRATIVE: CASE EVENT DATE: 20211218
